FAERS Safety Report 13417792 (Version 1)
Quarter: 2017Q2

REPORT INFORMATION
  Report Type: Spontaneous
  Country: US (occurrence: US)
  Receive Date: 20170406
  Receipt Date: 20170406
  Transmission Date: 20170830
  Serious: No
  Sender: FDA-Public Use
  Company Number: US-ALLERGAN-1675974US

PATIENT
  Age: 77 Year
  Sex: Male

DRUGS (1)
  1. CANASA [Suspect]
     Active Substance: MESALAMINE
     Indication: ANAL FISSURE
     Dosage: 1000 MG, QD
     Route: 054
     Dates: start: 20161004, end: 20161109

REACTIONS (2)
  - Off label use [Unknown]
  - Proctalgia [Recovered/Resolved]

NARRATIVE: CASE EVENT DATE: 20161004
